FAERS Safety Report 9812717 (Version 1)
Quarter: 2014Q1

REPORT INFORMATION
  Report Type: Spontaneous
  Country: US (occurrence: US)
  Receive Date: 20140113
  Receipt Date: 20140113
  Transmission Date: 20141002
  Serious: Yes (Hospitalization)
  Sender: FDA-Public Use
  Company Number: 2013SP007504

PATIENT
  Age: 7 Day
  Sex: Female
  Weight: 1.85 kg

DRUGS (2)
  1. VANCOMYCIN [Suspect]
     Indication: NECROTISING COLITIS
  2. GENTAMICIN [Concomitant]
     Indication: NECROTISING COLITIS

REACTIONS (4)
  - Toxicity to various agents [Recovering/Resolving]
  - Renal impairment [Recovering/Resolving]
  - Blood creatinine increased [Recovering/Resolving]
  - Urine output decreased [Recovering/Resolving]
